FAERS Safety Report 9738850 (Version 2)
Quarter: 2014Q1

REPORT INFORMATION
  Report Type: Spontaneous
  Country: US (occurrence: US)
  Receive Date: 20131209
  Receipt Date: 20140306
  Transmission Date: 20141002
  Serious: Yes (Hospitalization, Other)
  Sender: FDA-Public Use
  Company Number: US-PFIZER INC-2013351058

PATIENT
  Age: 49 Year
  Sex: Female
  Weight: 46.3 kg

DRUGS (7)
  1. ZOLOFT [Suspect]
     Indication: DEPRESSION
     Dosage: 100 MG, 1X/DAY
     Dates: start: 2003, end: 2013
  2. ZOLOFT [Suspect]
     Indication: POST-TRAUMATIC STRESS DISORDER
  3. HYDROCHLOROTHIAZIDE [Suspect]
     Indication: HYPERTENSION
     Dosage: 25 MG, 1X/DAY
  4. ABILIFY [Suspect]
     Indication: MANIA
     Dosage: UNK
  5. ZANTAC [Suspect]
     Indication: MIGRAINE
     Dosage: UNK
  6. LORTAB [Suspect]
     Indication: MIGRAINE
     Dosage: UNK
  7. BUTALBITAL/ASPIRIN/CAFFEINE [Suspect]
     Indication: MIGRAINE
     Dosage: UNK

REACTIONS (5)
  - Drug ineffective [Unknown]
  - Mania [Unknown]
  - Feeling abnormal [Unknown]
  - Pain in extremity [Unknown]
  - Malaise [Unknown]
